FAERS Safety Report 6885342-2 (Version None)
Quarter: 2010Q3

REPORT INFORMATION
  Report Type: 
  Country: None (occurrence: None)
  Receive Date: 20100726
  Receipt Date: 20100715
  Transmission Date: 20110219
  Serious: Yes (Hospitalization, Other)
  Sender: FDA-Public Use
  Company Number: 2009SP021064

PATIENT
  Age: 48 Year
  Sex: Female
  Weight: 65.7716 kg

DRUGS (3)
  1. NUVARING [Suspect]
     Indication: MENSTRUAL CYCLE MANAGEMENT
     Dates: start: 20070101, end: 20070801
  2. SYNTHROID [Concomitant]
  3. COSOPT [Concomitant]

REACTIONS (10)
  - HYPOKALAEMIA [None]
  - INFECTION [None]
  - LEFT VENTRICULAR DYSFUNCTION [None]
  - NEOPLASM MALIGNANT [None]
  - OVARIAN CYST [None]
  - PULMONARY EMBOLISM [None]
  - PULMONARY HYPERTENSION [None]
  - RESPIRATORY ALKALOSIS [None]
  - THROMBOSIS [None]
  - TRICUSPID VALVE INCOMPETENCE [None]
